FAERS Safety Report 9152487 (Version 1)
Quarter: 2013Q1

REPORT INFORMATION
  Report Type: Spontaneous
  Country: US (occurrence: US)
  Receive Date: 20130308
  Receipt Date: 20130308
  Transmission Date: 20140127
  Serious: No
  Sender: FDA-Public Use
  Company Number: US-MUTUAL PHARMACEUTICAL COMPANY, INC.-ALLP20120030

PATIENT
  Sex: Male
  Weight: 108.96 kg

DRUGS (6)
  1. ALLOPURINOL [Suspect]
     Indication: GOUT
     Route: 048
  2. NEXIUM [Concomitant]
     Indication: GASTROOESOPHAGEAL REFLUX DISEASE
     Route: 065
  3. ATENOLOL [Concomitant]
     Indication: HYPERTENSION
     Route: 065
  4. VERAPAMIL [Concomitant]
     Indication: HYPERTENSION
     Route: 065
  5. XANAX [Concomitant]
     Indication: ANXIETY
     Route: 065
  6. UNKNOWN ALLERGY MEDICATION [Concomitant]
     Indication: ANXIETY
     Route: 065

REACTIONS (1)
  - Abdominal discomfort [Recovered/Resolved]
